FAERS Safety Report 10032039 (Version 2)
Quarter: 2014Q1

REPORT INFORMATION
  Report Type: Spontaneous
  Country: US (occurrence: US)
  Receive Date: 20140324
  Receipt Date: 20140324
  Transmission Date: 20141002
  Serious: Yes (Death, Hospitalization, Other)
  Sender: FDA-Public Use
  Company Number: US-BAXTER-2014BAX013194

PATIENT
  Sex: Male

DRUGS (1)
  1. DIANEAL LOW CALCIUM [Suspect]
     Indication: PERITONEAL DIALYSIS
     Route: 033

REACTIONS (6)
  - Pneumonia [Fatal]
  - Malignant melanoma [Fatal]
  - Intestinal perforation [Unknown]
  - Medical device complication [Unknown]
  - Immunodeficiency [Unknown]
  - Peritonitis [Recovering/Resolving]
